FAERS Safety Report 19319276 (Version 2)
Quarter: 2021Q2

REPORT INFORMATION
  Report Type: Spontaneous
  Country: US (occurrence: US)
  Receive Date: 20210527
  Receipt Date: 20210531
  Transmission Date: 20210717
  Serious: Yes (Hospitalization, Other)
  Sender: FDA-Public Use
  Company Number: US-PFIZER INC-2021573403

PATIENT
  Age: 54 Year
  Sex: Female

DRUGS (3)
  1. ARAVA [Suspect]
     Active Substance: LEFLUNOMIDE
     Dosage: UNK
     Dates: start: 2020
  2. METHOTREXATE SODIUM. [Suspect]
     Active Substance: METHOTREXATE SODIUM
     Dosage: UNK
     Dates: start: 2020
  3. PREDNISONE. [Suspect]
     Active Substance: PREDNISONE
     Dosage: UNK
     Dates: start: 2020

REACTIONS (14)
  - Hypokalaemia [Unknown]
  - Renal failure [Not Recovered/Not Resolved]
  - Abnormal faeces [Unknown]
  - Dehydration [Not Recovered/Not Resolved]
  - Crohn^s disease [Unknown]
  - Magnesium deficiency [Unknown]
  - Gastric disorder [Unknown]
  - Weight decreased [Unknown]
  - Faecal fat increased [Unknown]
  - Amylase decreased [Unknown]
  - Gait disturbance [Unknown]
  - Pancreatic failure [Unknown]
  - Rheumatoid arthritis [Unknown]
  - Iron deficiency [Unknown]
